FAERS Safety Report 12916046 (Version 1)
Quarter: 2016Q4

REPORT INFORMATION
  Report Type: Not Available
  Country: None (occurrence: US)
  Receive Date: 20161104
  Receipt Date: 20161104
  Transmission Date: 20170207
  Serious: No
  Sender: FDA-Public Use
  Company Number: US-AKORN-32039

PATIENT
  Age: 69 Year
  Sex: Female

DRUGS (1)
  1. CLOBETASOL PROPIONATE OINTMENT, USP, 0.05% [Suspect]
     Active Substance: CLOBETASOL PROPIONATE

REACTIONS (2)
  - Blood pressure increased [Unknown]
  - Tachycardia [Unknown]
